FAERS Safety Report 4295997-7 (Version None)
Quarter: 2004Q1

REPORT INFORMATION
  Report Type: 
  Country: None (occurrence: None)
  Receive Date: 20040212
  Receipt Date: 20040202
  Transmission Date: 20041129
  Serious: Yes (Other)
  Sender: FDA-Public Use
  Company Number: USA-2004-0012884

PATIENT
  Sex: Male

DRUGS (1)
  1. OXYCONTIN [Suspect]
     Dosage: 40 MG, SEE TEXT

REACTIONS (3)
  - HALLUCINATION [None]
  - MEDICATION ERROR [None]
  - VISUAL DISTURBANCE [None]
